FAERS Safety Report 23185017 (Version 1)
Quarter: 2023Q4

REPORT INFORMATION
  Report Type: Spontaneous
  Country: FR (occurrence: None)
  Receive Date: 20231115
  Receipt Date: 20231115
  Transmission Date: 20240109
  Serious: Yes (Other)
  Sender: FDA-Public Use
  Company Number: 2023A257085

PATIENT

DRUGS (1)
  1. SELUMETINIB [Suspect]
     Active Substance: SELUMETINIB
     Route: 048

REACTIONS (3)
  - Cell death [Unknown]
  - Pain [Unknown]
  - Mucocutaneous toxicity [Unknown]
